FAERS Safety Report 20940555 (Version 1)
Quarter: 2022Q2

REPORT INFORMATION
  Report Type: Report from Study
  Country: US (occurrence: US)
  Receive Date: 20220609
  Receipt Date: 20220609
  Transmission Date: 20220720
  Serious: Yes (Other)
  Sender: FDA-Public Use
  Company Number: US-MALLINCKRODT-T202201041

PATIENT
  Age: 46 Year
  Sex: Female

DRUGS (5)
  1. CORTICOTROPIN [Suspect]
     Active Substance: CORTICOTROPIN
     Indication: Multiple sclerosis
     Dosage: UNK
     Route: 065
  2. CORTICOTROPIN [Suspect]
     Active Substance: CORTICOTROPIN
     Indication: Systemic lupus erythematosus
     Dosage: 80 UNITS, TWO TIMES PER WEEK, FOR ONE MONTH
     Route: 030
     Dates: start: 20210602
  3. CORTICOTROPIN [Suspect]
     Active Substance: CORTICOTROPIN
     Dosage: UNK, TWO TIMES PER WEEK (SUNDAY MORNINGS, AND WEDNESDAY EVENINGS)
     Route: 058
     Dates: start: 20220327, end: 2022
  4. CORTICOTROPIN [Suspect]
     Active Substance: CORTICOTROPIN
     Dosage: 0.8 MILLILITER
     Route: 058
     Dates: start: 2022, end: 2022
  5. VYEPTI [Concomitant]
     Active Substance: EPTINEZUMAB-JJMR
     Indication: Product used for unknown indication
     Dosage: UNKNOWN
     Route: 065

REACTIONS (10)
  - Duodenal ulcer [Unknown]
  - Intestinal perforation [Unknown]
  - COVID-19 [Unknown]
  - Anal ulcer haemorrhage [Unknown]
  - Faeces discoloured [Unknown]
  - Agitation [Not Recovered/Not Resolved]
  - Injection site reaction [Unknown]
  - Incorrect route of product administration [Unknown]
  - Product dose omission issue [Unknown]
  - Underdose [Unknown]

NARRATIVE: CASE EVENT DATE: 20220327
